FAERS Safety Report 19989694 (Version 1)
Quarter: 2021Q4

REPORT INFORMATION
  Report Type: Other
  Country: FR (occurrence: FR)
  Receive Date: 20211025
  Receipt Date: 20211025
  Transmission Date: 20220303
  Serious: Yes (Hospitalization, Other)
  Sender: FDA-Public Use
  Company Number: FR-CELLTRION INC.-2021FR014366

PATIENT

DRUGS (4)
  1. RITUXIMAB [Suspect]
     Active Substance: RITUXIMAB
     Indication: Chronic lymphocytic leukaemia
     Route: 065
  2. IMBRUVICA [Interacting]
     Active Substance: IBRUTINIB
     Indication: Chronic lymphocytic leukaemia
     Dosage: 420 MG, QD
     Route: 048
     Dates: start: 201708
  3. VORICONAZOLE [Interacting]
     Active Substance: VORICONAZOLE
     Indication: Intervertebral discitis
     Dosage: THE DOSAGE OF THE LATTER WAS REDUCED TO ONE-THIRD
     Route: 048
  4. VORICONAZOLE [Interacting]
     Active Substance: VORICONAZOLE
     Dosage: TWO ORAL DOSES WAS INITIATED (400 MG, QD)
     Route: 048

REACTIONS (4)
  - Drug interaction [Unknown]
  - Spinal cord compression [Recovering/Resolving]
  - Intervertebral discitis [Recovering/Resolving]
  - Bronchopulmonary aspergillosis [Recovering/Resolving]

NARRATIVE: CASE EVENT DATE: 20180401
